FAERS Safety Report 11226029 (Version 1)
Quarter: 2015Q2

REPORT INFORMATION
  Report Type: Spontaneous
  Country: US (occurrence: US)
  Receive Date: 20150629
  Receipt Date: 20150629
  Transmission Date: 20150821
  Serious: No
  Sender: FDA-Public Use
  Company Number: US-ASTRAZENECA-2015SE60849

PATIENT
  Age: 12573 Day
  Sex: Female
  Weight: 76.2 kg

DRUGS (2)
  1. SYMLIN [Suspect]
     Active Substance: PRAMLINTIDE ACETATE
     Indication: TYPE 1 DIABETES MELLITUS
     Dosage: 1 MG/1.5 ML 2 PEN, 60MCG, BEFORE MEALS
     Route: 058
     Dates: start: 20150615
  2. HUMALOG [Concomitant]
     Active Substance: INSULIN LISPRO

REACTIONS (5)
  - Blood glucose increased [Unknown]
  - Device misuse [Unknown]
  - Decreased appetite [Unknown]
  - Malaise [Unknown]
  - Drug dose omission [Unknown]

NARRATIVE: CASE EVENT DATE: 20150616
